FAERS Safety Report 20208900 (Version 1)
Quarter: 2021Q4

REPORT INFORMATION
  Report Type: Spontaneous
  Country: US (occurrence: None)
  Receive Date: 20211220
  Receipt Date: 20211220
  Transmission Date: 20220303
  Serious: Yes (Other)
  Sender: FDA-Public Use
  Company Number: None

PATIENT
  Sex: Female

DRUGS (1)
  1. PREDNISONE [Suspect]
     Active Substance: PREDNISONE

REACTIONS (9)
  - Nasopharyngitis [None]
  - Cough [None]
  - Dry throat [None]
  - Oropharyngeal pain [None]
  - Disease recurrence [None]
  - Musculoskeletal disorder [None]
  - Movement disorder [None]
  - Pyrexia [None]
  - Pruritus [None]
